FAERS Safety Report 24706092 (Version 2)
Quarter: 2024Q4

REPORT INFORMATION
  Report Type: Report from Study
  Country: US (occurrence: US)
  Receive Date: 20241206
  Receipt Date: 20241211
  Transmission Date: 20250115
  Serious: Yes (Other)
  Sender: NOVARTIS
  Company Number: US-002147023-NVSC2024US226003

PATIENT
  Sex: Male
  Weight: 60 kg

DRUGS (1)
  1. KYMRIAH [Suspect]
     Active Substance: TISAGENLECLEUCEL
     Indication: Lymphoma
     Dosage: UNK, ONCE/SINGLE
     Route: 042
     Dates: start: 20241120, end: 20241120

REACTIONS (7)
  - Immune effector cell-associated neurotoxicity syndrome [Unknown]
  - Lymphoma [Unknown]
  - Malignant neoplasm progression [Unknown]
  - Metastases to central nervous system [Unknown]
  - Metastases to spine [Unknown]
  - COVID-19 [Unknown]
  - Decreased immune responsiveness [Unknown]
